FAERS Safety Report 13864416 (Version 1)
Quarter: 2017Q3

REPORT INFORMATION
  Report Type: Spontaneous
  Country: US (occurrence: US)
  Receive Date: 20170814
  Receipt Date: 20170814
  Transmission Date: 20171127
  Serious: No
  Sender: FDA-Public Use
  Company Number: US-BAYER-2017-153754

PATIENT
  Age: 47 Year
  Sex: Female
  Weight: 52 kg

DRUGS (2)
  1. MIRALAX [Suspect]
     Active Substance: POLYETHYLENE GLYCOL 3350
     Indication: GASTROINTESTINAL DISORDER
     Dosage: 2 DF, QD
     Route: 048
  2. THYROID [Concomitant]
     Active Substance: LEVOTHYROXINE\LIOTHYRONINE
     Dosage: UNK

REACTIONS (3)
  - Abdominal pain upper [Unknown]
  - Off label use [Unknown]
  - Incorrect drug administration duration [Unknown]
